FAERS Safety Report 8798576 (Version 1)
Quarter: 2012Q4

REPORT INFORMATION
  Report Type: Spontaneous
  Country: US (occurrence: None)
  Receive Date: 20120917
  Receipt Date: 20120917
  Transmission Date: 20130627
  Serious: Yes (Death)
  Sender: FDA-Public Use
  Company Number: None

PATIENT
  Age: 73 Year
  Sex: Male

DRUGS (7)
  1. LETAIRIS [Suspect]
     Indication: PULMONARY HYPERTENSION
     Dosage: Letairis 5mg qd orally
     Route: 048
     Dates: start: 201201, end: 201208
  2. VELETRI [Concomitant]
  3. REVATIO [Concomitant]
  4. AMBIEN [Concomitant]
  5. MORPHINE SULFATE [Concomitant]
  6. PRILOSEC [Concomitant]
  7. SODIUM BICARBONATE [Concomitant]

REACTIONS (4)
  - Gastrointestinal haemorrhage [None]
  - Renal failure [None]
  - Haemoglobin decreased [None]
  - Epistaxis [None]
